FAERS Safety Report 11755411 (Version 2)
Quarter: 2015Q4

REPORT INFORMATION
  Report Type: Spontaneous
  Country: US (occurrence: US)
  Receive Date: 20151119
  Receipt Date: 20151217
  Transmission Date: 20160304
  Serious: No
  Sender: FDA-Public Use
  Company Number: US-GLAXOSMITHKLINE-US2015GSK136509

PATIENT
  Sex: Female

DRUGS (3)
  1. TOPAMAX [Suspect]
     Active Substance: TOPIRAMATE
     Indication: MIGRAINE PROPHYLAXIS
     Dosage: UNK, QD
  2. RELPAX [Suspect]
     Active Substance: ELETRIPTAN HYDROBROMIDE
     Indication: MIGRAINE
     Dosage: UNK
     Route: 065
  3. IMITREX [Suspect]
     Active Substance: SUMATRIPTAN\SUMATRIPTAN SUCCINATE
     Indication: MIGRAINE
     Dosage: UNK

REACTIONS (7)
  - Feeling jittery [Unknown]
  - Somnolence [Unknown]
  - Drug ineffective [Unknown]
  - Dizziness [Unknown]
  - Feeling abnormal [Unknown]
  - Disturbance in attention [Unknown]
  - Performance status decreased [Unknown]
